FAERS Safety Report 4326571-1 (Version None)
Quarter: 2004Q1

REPORT INFORMATION
  Report Type: 
  Country: None (occurrence: None)
  Receive Date: 20040326
  Receipt Date: 20040326
  Transmission Date: 20041129
  Serious: No
  Sender: FDA-Public Use
  Company Number: None

PATIENT
  Age: 64 Year
  Sex: Male
  Weight: 91.173 kg

DRUGS (1)
  1. FORMOTEROL [Suspect]
     Indication: ASTHMA
     Dosage: 1 CAP BID

REACTIONS (3)
  - INSOMNIA [None]
  - NERVOUSNESS [None]
  - VISION BLURRED [None]
